FAERS Safety Report 10657142 (Version 1)
Quarter: 2014Q4

REPORT INFORMATION
  Report Type: Spontaneous
  Country: AT (occurrence: AT)
  Receive Date: 20141217
  Receipt Date: 20141217
  Transmission Date: 20150529
  Serious: Yes (Life-Threatening)
  Sender: FDA-Public Use
  Company Number: AT-ROCHE-1508410

PATIENT
  Age: 40 Year
  Sex: Female
  Weight: 47.8 kg

DRUGS (54)
  1. PEGASYS [Suspect]
     Active Substance: PEGINTERFERON ALFA-2A
     Indication: HEPATITIS C
     Dosage: SUNDAYS
     Route: 048
     Dates: end: 20130512
  2. COPEGUS [Suspect]
     Active Substance: RIBAVIRIN
     Indication: HEPATITIS C
     Dosage: SINCE MONTHS
     Route: 065
     Dates: start: 20130325
  3. SEROQUEL [Suspect]
     Active Substance: QUETIAPINE FUMARATE
     Route: 048
     Dates: start: 20130530
  4. SEROQUEL XR [Suspect]
     Active Substance: QUETIAPINE FUMARATE
     Route: 048
     Dates: start: 20130423, end: 20130424
  5. CIPRALEX [Concomitant]
     Active Substance: ESCITALOPRAM OXALATE
     Route: 048
     Dates: start: 20130329, end: 20130405
  6. CIPRALEX [Concomitant]
     Active Substance: ESCITALOPRAM OXALATE
     Route: 048
     Dates: start: 20130406, end: 20130528
  7. LOVENOX [Concomitant]
     Active Substance: ENOXAPARIN SODIUM
     Route: 065
     Dates: start: 20130514
  8. KALIORAL (AUSTRIA) [Concomitant]
     Route: 065
     Dates: start: 20130514
  9. SERETIDE [Concomitant]
     Active Substance: FLUTICASONE FUROATE\SALMETEROL XINAFOATE
     Dosage: SINCE MONTHS
     Route: 065
     Dates: start: 20130513
  10. SEROQUEL XR [Suspect]
     Active Substance: QUETIAPINE FUMARATE
     Indication: PRODUCT USED FOR UNKNOWN INDICATION
     Route: 048
     Dates: start: 20130325, end: 20130331
  11. MIRTABENE [Concomitant]
     Active Substance: MIRTAZAPINE
     Route: 048
     Dates: start: 20130420, end: 20130516
  12. IXEL [Concomitant]
     Active Substance: MILNACIPRAN HYDROCHLORIDE
     Route: 065
     Dates: start: 20130409, end: 20130410
  13. RIVOTRIL [Concomitant]
     Active Substance: CLONAZEPAM
     Route: 065
     Dates: start: 20130508, end: 20130512
  14. MEXALEN [Concomitant]
     Active Substance: LUBIPROSTONE
     Route: 065
     Dates: start: 20130514, end: 20130516
  15. NOVALGIN (AUSTRIA) [Concomitant]
     Dosage: 1 DAILY
     Route: 042
     Dates: start: 20130528, end: 20130528
  16. LYRICA [Concomitant]
     Active Substance: PREGABALIN
     Route: 065
     Dates: start: 20130529
  17. CIPRALEX [Concomitant]
     Active Substance: ESCITALOPRAM OXALATE
     Dosage: 10 DAILY
     Route: 048
     Dates: start: 20130321, end: 20130328
  18. NICOTINE. [Concomitant]
     Active Substance: NICOTINE
     Route: 065
     Dates: start: 20130514
  19. MIRTABENE [Concomitant]
     Active Substance: MIRTAZAPINE
     Route: 048
     Dates: start: 20130517, end: 20130528
  20. MEXALEN [Concomitant]
     Active Substance: LUBIPROSTONE
     Route: 065
     Dates: start: 20130517, end: 20130517
  21. NOVALGIN (AUSTRIA) [Concomitant]
     Route: 042
     Dates: start: 20130528
  22. LYRICA [Concomitant]
     Active Substance: PREGABALIN
     Route: 065
     Dates: start: 20130525, end: 20130526
  23. NICOTINE. [Concomitant]
     Active Substance: NICOTINE
     Route: 065
     Dates: start: 20130515, end: 20130528
  24. NICOTINE. [Concomitant]
     Active Substance: NICOTINE
     Route: 065
     Dates: start: 20130529
  25. ZITHROMAX [Concomitant]
     Active Substance: AZITHROMYCIN DIHYDRATE
     Route: 065
     Dates: start: 20130524, end: 20130526
  26. APREDNISLON [Concomitant]
     Active Substance: PREDNISOLONE
     Route: 065
     Dates: start: 20130524
  27. SEROQUEL [Suspect]
     Active Substance: QUETIAPINE FUMARATE
     Indication: PRODUCT USED FOR UNKNOWN INDICATION
     Route: 048
     Dates: start: 20130329, end: 20130409
  28. SEROQUEL [Suspect]
     Active Substance: QUETIAPINE FUMARATE
     Route: 048
     Dates: start: 20130425, end: 20130425
  29. CIPRALEX [Concomitant]
     Active Substance: ESCITALOPRAM OXALATE
     Dosage: 20 DAILY
     Route: 048
     Dates: start: 20130529, end: 20130529
  30. IXEL [Concomitant]
     Active Substance: MILNACIPRAN HYDROCHLORIDE
     Route: 065
     Dates: start: 20130326, end: 20130408
  31. NEXIUM [Concomitant]
     Active Substance: ESOMEPRAZOLE MAGNESIUM
     Route: 048
     Dates: start: 20130525
  32. SOLUDACORTIN [Concomitant]
     Route: 042
     Dates: start: 20130518, end: 20130520
  33. LYRICA [Concomitant]
     Active Substance: PREGABALIN
     Route: 065
     Dates: start: 20130528, end: 20130528
  34. SEROQUEL [Suspect]
     Active Substance: QUETIAPINE FUMARATE
     Route: 048
     Dates: start: 20130410, end: 20130424
  35. SEROQUEL [Suspect]
     Active Substance: QUETIAPINE FUMARATE
     Route: 048
     Dates: start: 20130426, end: 20130529
  36. TELAPREVIR [Suspect]
     Active Substance: TELAPREVIR
     Indication: HEPATITIS C
     Route: 065
  37. MIRTABENE [Concomitant]
     Active Substance: MIRTAZAPINE
     Route: 048
     Dates: start: 20130409, end: 20130419
  38. MIRTABENE [Concomitant]
     Active Substance: MIRTAZAPINE
     Route: 048
     Dates: start: 20130529
  39. CIPRALEX [Concomitant]
     Active Substance: ESCITALOPRAM OXALATE
     Route: 048
     Dates: start: 20130530, end: 20130530
  40. CHLORHEXAMED [Concomitant]
     Route: 065
     Dates: start: 20130415, end: 20130513
  41. AVELOX (AUSTRIA) [Concomitant]
     Route: 065
     Dates: start: 20130509, end: 20130513
  42. LYRICA [Concomitant]
     Active Substance: PREGABALIN
     Route: 065
     Dates: start: 20130527, end: 20130527
  43. REBETOL [Suspect]
     Active Substance: RIBAVIRIN
     Indication: HEPATITIS C
     Route: 065
     Dates: start: 20130325, end: 20130514
  44. NEXIUM [Concomitant]
     Active Substance: ESOMEPRAZOLE MAGNESIUM
     Route: 048
     Dates: start: 20130514, end: 20130525
  45. SOLUDACORTIN [Concomitant]
     Route: 042
     Dates: start: 20130515, end: 20130517
  46. NOVALGIN (AUSTRIA) [Concomitant]
     Dosage: 2 DAILY
     Route: 042
     Dates: start: 20130517, end: 20130517
  47. NOVALGIN (AUSTRIA) [Concomitant]
     Dosage: 3 DAILY
     Route: 042
     Dates: start: 20130518, end: 20130518
  48. BERODUAL [Concomitant]
     Active Substance: FENOTEROL HYDROBROMIDE\IPRATROPIUM BROMIDE
     Route: 065
     Dates: start: 20130515
  49. SEROQUEL XR [Suspect]
     Active Substance: QUETIAPINE FUMARATE
     Route: 048
     Dates: start: 20130401, end: 20130422
  50. MIRTABENE [Concomitant]
     Active Substance: MIRTAZAPINE
     Route: 048
     Dates: start: 20130321, end: 20130408
  51. IXEL [Concomitant]
     Active Substance: MILNACIPRAN HYDROCHLORIDE
     Route: 065
     Dates: start: 20130325, end: 20130325
  52. SOLUDACORTIN [Concomitant]
     Route: 042
     Dates: start: 20130521, end: 20130523
  53. LYRICA [Concomitant]
     Active Substance: PREGABALIN
     Route: 065
     Dates: start: 20130523, end: 20130524
  54. TUSSAMAG [Concomitant]
     Dosage: 1-3 X 1 DAILY
     Route: 065
     Dates: start: 20130524

REACTIONS (1)
  - Acute respiratory distress syndrome [Recovered/Resolved]

NARRATIVE: CASE EVENT DATE: 201305
